FAERS Safety Report 13557299 (Version 3)
Quarter: 2018Q3

REPORT INFORMATION
  Report Type: Report from Study
  Country: US (occurrence: US)
  Receive Date: 20170518
  Receipt Date: 20180801
  Transmission Date: 20181010
  Serious: Yes (Hospitalization, Other)
  Sender: FDA-Public Use
  Company Number: US-SA-2017SA087670

PATIENT
  Age: 30 Year
  Sex: Male

DRUGS (3)
  1. CEREZYME [Suspect]
     Active Substance: IMIGLUCERASE
     Dosage: UNK UNK,UNK
     Route: 041
     Dates: start: 20140522
  2. CEREZYME [Suspect]
     Active Substance: IMIGLUCERASE
     Dosage: DOSE: 6000.00 FREQUENCY: Q2
     Route: 041
     Dates: start: 20141001
  3. CEREZYME [Suspect]
     Active Substance: IMIGLUCERASE
     Dosage: UNK UNK,UNK
     Route: 041
     Dates: start: 2008

REACTIONS (8)
  - Accident [Unknown]
  - Hip arthroplasty [Recovering/Resolving]
  - Fatigue [Recovering/Resolving]
  - Myalgia [Recovering/Resolving]
  - Arthritis [Recovering/Resolving]
  - Hepatic pain [Recovering/Resolving]
  - Chest pain [Recovering/Resolving]
  - Bone pain [Recovering/Resolving]

NARRATIVE: CASE EVENT DATE: 20090901
